FAERS Safety Report 8437225-4 (Version None)
Quarter: 2012Q2

REPORT INFORMATION
  Report Type: 
  Country: None (occurrence: None)
  Receive Date: 20120614
  Receipt Date: 20120227
  Transmission Date: 20120825
  Serious: No
  Sender: FDA-Public Use
  Company Number: US-AMGEN-USASP2012004116

PATIENT
  Age: 70 Year
  Sex: Female
  Weight: 53.197 kg

DRUGS (23)
  1. ALPRAZOLAM [Concomitant]
     Dosage: 0.5 MG, PRN
     Route: 048
  2. CYCLOBENZAPRINE [Concomitant]
     Dosage: 10 MG, UNK
     Route: 048
  3. VITAMIN E                          /00110501/ [Concomitant]
     Dosage: 400 IU, QD
     Route: 048
  4. ASACOL [Concomitant]
     Dosage: 400 MG, BID
     Route: 048
  5. CELEBREX [Concomitant]
     Dosage: 200 MG, QD
     Route: 048
  6. CARAFATE [Concomitant]
  7. NATTOKINASE [Concomitant]
  8. VITAMIN B COMPLEX CAP [Concomitant]
  9. BIOTIN [Concomitant]
  10. DIOVAN [Concomitant]
     Route: 048
  11. LEVOTHYROXINE SODIUM [Concomitant]
     Dosage: 50 MUG, QD
     Route: 048
  12. LIOTHYRONINE SODIUM [Concomitant]
     Dosage: 5 MUG, QD
     Route: 048
  13. MULTIVITAMIN                       /00097801/ [Concomitant]
     Dosage: UNK UNK, QD
  14. AZATHIOPRINE [Concomitant]
     Dosage: 50 MG, QD
  15. IMURAN [Concomitant]
  16. LEUCOVORIN CALCIUM [Concomitant]
     Dosage: UNK UNK, QD
  17. NASONEX [Concomitant]
     Dosage: 50 MUG, UNK
  18. VENLAFAXINE HCL [Concomitant]
     Dosage: 75 MG, QD
     Route: 048
  19. VITAMIN D [Concomitant]
     Dosage: 2000 IU, QD
  20. PROLIA [Suspect]
     Indication: OSTEOPENIA
     Dosage: 60 MG, Q6MO
     Route: 058
     Dates: start: 20111228, end: 20120103
  21. NEXIUM [Concomitant]
     Dosage: 40 MG, QD
     Route: 048
  22. ZYRTEC [Concomitant]
     Dosage: 10 MG, UNK
  23. ASPIRIN [Concomitant]
     Dosage: 81 MG, QD
     Route: 048

REACTIONS (7)
  - SKIN FRAGILITY [None]
  - IMPAIRED HEALING [None]
  - ACUTE SINUSITIS [None]
  - SKIN EXFOLIATION [None]
  - PAIN IN EXTREMITY [None]
  - OPEN WOUND [None]
  - ERYTHEMA [None]
